FAERS Safety Report 4955218-6 (Version None)
Quarter: 2006Q1

REPORT INFORMATION
  Report Type: 
  Country: None (occurrence: None)
  Receive Date: 20060322
  Receipt Date: 20060313
  Transmission Date: 20060701
  Serious: Yes (Other)
  Sender: FDA-Public Use
  Company Number: 2006035001

PATIENT
  Age: 74 Year
  Sex: Male
  Weight: 77.5651 kg

DRUGS (3)
  1. LIPITOR [Suspect]
     Indication: BLOOD CHOLESTEROL INCREASED
     Dosage: 10 MG (10 MG, 1 IN 1 D), ORAL
     Route: 048
     Dates: start: 20030101
  2. ECOTRIN (ACETYLSALICYLIC ACID) [Concomitant]
  3. ATENOLOL [Concomitant]

REACTIONS (4)
  - AORTIC SURGERY [None]
  - MYALGIA [None]
  - STENT PLACEMENT [None]
  - VASCULAR STENOSIS [None]
